FAERS Safety Report 15613460 (Version 1)
Quarter: 2018Q4

REPORT INFORMATION
  Report Type: Spontaneous
  Country: IE (occurrence: IE)
  Receive Date: 20181113
  Receipt Date: 20181113
  Transmission Date: 20190205
  Serious: Yes (Other)
  Sender: FDA-Public Use
  Company Number: IE-MYLANLABS-2018M1085927

PATIENT
  Sex: Female

DRUGS (2)
  1. TAVAGER 500 MG FILM-COATED TABLETS [Suspect]
     Active Substance: LEVOFLOXACIN
     Indication: PRODUCT USED FOR UNKNOWN INDICATION
     Dosage: 500 MG, BID (ONE TABLET TAKEN ON MONDAY, TWO ON TUESDAY AND ONE ON WEDNESDAY MORNING 4 TABLETS TOTAL
     Route: 048
     Dates: start: 201805
  2. PERINDOPRIL [Concomitant]
     Active Substance: PERINDOPRIL
     Indication: BLOOD PRESSURE MEASUREMENT
     Dosage: 10 MG, UNK

REACTIONS (5)
  - Feeling hot [Recovering/Resolving]
  - Paraesthesia [Recovering/Resolving]
  - Joint swelling [Unknown]
  - Hallucination [Unknown]
  - Rash erythematous [Recovered/Resolved]
